FAERS Safety Report 5695081-1 (Version None)
Quarter: 2008Q2

REPORT INFORMATION
  Report Type: 
  Country: None (occurrence: None)
  Receive Date: 20080404
  Receipt Date: 20080225
  Transmission Date: 20081010
  Serious: No
  Sender: FDA-Public Use
  Company Number: US-BAYER-200815434NA

PATIENT
  Age: 30 Year
  Sex: Male
  Weight: 88 kg

DRUGS (1)
  1. MAGNEVIST SINGLE USE VIAL 20ML [Suspect]
     Indication: NUCLEAR MAGNETIC RESONANCE IMAGING BRAIN
     Route: 042
     Dates: start: 20080222, end: 20080222

REACTIONS (2)
  - NAUSEA [None]
  - VOMITING [None]
